FAERS Safety Report 5440479-X (Version None)
Quarter: 2007Q3

REPORT INFORMATION
  Report Type: 
  Country: None (occurrence: None)
  Receive Date: 20070831
  Receipt Date: 20070822
  Transmission Date: 20080115
  Serious: Yes (Hospitalization, Other)
  Sender: FDA-Public Use
  Company Number: US-AMGEN-STX233302

PATIENT
  Sex: Female
  Weight: 90.8 kg

DRUGS (3)
  1. ENBREL [Suspect]
     Indication: RHEUMATOID ARTHRITIS
     Route: 058
     Dates: start: 20011127
  2. METHOTREXATE [Concomitant]
     Dates: start: 19940915
  3. TRILISATE [Concomitant]
     Dates: start: 19930101

REACTIONS (5)
  - ALOPECIA [None]
  - BREAST CANCER [None]
  - FOOT OPERATION [None]
  - JOINT ARTHROPLASTY [None]
  - KNEE ARTHROPLASTY [None]
